FAERS Safety Report 7548931-8 (Version None)
Quarter: 2011Q2

REPORT INFORMATION
  Report Type: 
  Country: None (occurrence: None)
  Receive Date: 20110615
  Receipt Date: 20110607
  Transmission Date: 20111010
  Serious: Yes (Hospitalization, Other)
  Sender: FDA-Public Use
  Company Number: US-ROCHE-735524

PATIENT
  Sex: Female
  Weight: 62.6 kg

DRUGS (2)
  1. ACCUTANE [Suspect]
     Route: 065
     Dates: start: 19971101, end: 19980301
  2. ACCUTANE [Suspect]
     Route: 065
     Dates: start: 19930501, end: 19940330

REACTIONS (10)
  - CROHN'S DISEASE [None]
  - IRRITABLE BOWEL SYNDROME [None]
  - COLONIC POLYP [None]
  - INFLAMMATORY BOWEL DISEASE [None]
  - DEPRESSION [None]
  - SUICIDAL IDEATION [None]
  - CHRONIC FATIGUE SYNDROME [None]
  - GASTROINTESTINAL INJURY [None]
  - GALLBLADDER DISORDER [None]
  - RENAL DISORDER [None]
